FAERS Safety Report 24185371 (Version 1)
Quarter: 2024Q3

REPORT INFORMATION
  Report Type: Spontaneous
  Country: US (occurrence: US)
  Receive Date: 20240807
  Receipt Date: 20240807
  Transmission Date: 20241017
  Serious: Yes (Other)
  Sender: IMPRIMIS PHARMACEUTICALS, INC. - COMPOUNDING
  Company Number: US-Imprimis NJOF, LLC-2160145

PATIENT
  Sex: Male

DRUGS (1)
  1. BIMATOPROST\BRIMONIDINE\DORZOLAMIDE\TIMOLOL [Suspect]
     Active Substance: BIMATOPROST\BRIMONIDINE\DORZOLAMIDE\TIMOLOL
     Indication: Glaucoma
     Route: 047

REACTIONS (2)
  - Dermatitis allergic [Recovering/Resolving]
  - Intraocular pressure increased [Recovering/Resolving]
